FAERS Safety Report 23393576 (Version 1)
Quarter: 2024Q1

REPORT INFORMATION
  Report Type: Spontaneous
  Country: US (occurrence: None)
  Receive Date: 20240111
  Receipt Date: 20240111
  Transmission Date: 20240410
  Serious: Yes (Hospitalization)
  Sender: FDA-Public Use
  Company Number: None

PATIENT
  Sex: Female

DRUGS (1)
  1. HUMIRA [Suspect]
     Active Substance: ADALIMUMAB
     Dosage: FREQUENCY : EVERY OTHER WEEK;?
     Route: 058
     Dates: start: 202311

REACTIONS (9)
  - Rheumatoid arthritis [None]
  - Arthralgia [None]
  - Urticaria [None]
  - Nausea [None]
  - Vomiting [None]
  - Bone pain [None]
  - Cellulitis [None]
  - Bone marrow oedema [None]
  - Staphylococcal infection [None]
